FAERS Safety Report 19207058 (Version 1)
Quarter: 2021Q2

REPORT INFORMATION
  Report Type: Spontaneous
  Country: US (occurrence: US)
  Receive Date: 20210503
  Receipt Date: 20210503
  Transmission Date: 20210717
  Serious: Yes (Life-Threatening, Hospitalization)
  Sender: FDA-Public Use
  Company Number: US-MYLANLABS-2021M1025204

PATIENT
  Age: 34 Year
  Sex: Male

DRUGS (1)
  1. TRANEXAMIC ACID. [Suspect]
     Active Substance: TRANEXAMIC ACID
     Indication: HAEMOPTYSIS
     Dosage: 500 MILLIGRAM, TID RECEIVED THRICE DAILY

REACTIONS (4)
  - Obstructive airways disorder [Recovered/Resolved]
  - Thrombosis [Recovered/Resolved]
  - Tracheal disorder [Recovered/Resolved]
  - Off label use [Unknown]
